FAERS Safety Report 8594857-0 (Version None)
Quarter: 2012Q3

REPORT INFORMATION
  Report Type: 
  Country: None (occurrence: None)
  Receive Date: 20120815
  Receipt Date: 20120801
  Transmission Date: 20120928
  Serious: Yes (Hospitalization)
  Sender: FDA-Public Use
  Company Number: PL-MYLANLABS-2012S1015975

PATIENT
  Age: 30 Year
  Sex: Female

DRUGS (2)
  1. CAPTOPRIL [Suspect]
     Indication: HYPERTENSION
     Dosage: 75MG DAILY
     Route: 065
  2. METHIMAZOLE [Suspect]
     Indication: INSULIN AUTOIMMUNE SYNDROME
     Dosage: 30MG DAILY
     Route: 065

REACTIONS (2)
  - INSULIN AUTOIMMUNE SYNDROME [None]
  - HYPOGLYCAEMIC COMA [None]
